FAERS Safety Report 10313986 (Version 3)
Quarter: 2014Q3

REPORT INFORMATION
  Report Type: Spontaneous
  Country: JP (occurrence: JP)
  Receive Date: 20140718
  Receipt Date: 20140917
  Transmission Date: 20150326
  Serious: Yes (Hospitalization, Other)
  Sender: FDA-Public Use
  Company Number: JP-009507513-1407JPN008311

PATIENT
  Age: 51 Year
  Sex: Female

DRUGS (2)
  1. TOREMIFENE CITRATE [Suspect]
     Active Substance: TOREMIFENE CITRATE
     Indication: BREAST CANCER
     Dosage: 40 MG, QD
     Route: 048
     Dates: start: 20100601, end: 20140224
  2. LEUPLIN [Concomitant]
     Active Substance: LEUPROLIDE ACETATE
     Indication: BREAST CANCER
     Dosage: 3.75 MG / DOSE
     Route: 058
     Dates: start: 20100622, end: 20120712

REACTIONS (1)
  - Intracranial venous sinus thrombosis [Recovering/Resolving]

NARRATIVE: CASE EVENT DATE: 20140224
